FAERS Safety Report 24114216 (Version 3)
Quarter: 2024Q4

REPORT INFORMATION
  Report Type: Report from Study
  Country: US (occurrence: US)
  Receive Date: 20240720
  Receipt Date: 20241111
  Transmission Date: 20250114
  Serious: Yes (Hospitalization, Other)
  Sender: MERCK
  Company Number: US-009507513-2406USA007712

PATIENT
  Sex: Female
  Weight: 59 kg

DRUGS (20)
  1. SOTATERCEPT [Suspect]
     Active Substance: SOTATERCEPT
     Indication: Pulmonary arterial hypertension
     Dosage: 0.9 MILLILITER, Q3W, STRENGTH 45 MG
     Route: 058
     Dates: start: 20240522
  2. REMODULIN [Suspect]
     Active Substance: TREPROSTINIL
     Indication: Pulmonary arterial hypertension
     Dosage: 0.099 MICROGRAM PER KILOGRAM, CONTINUOUS
     Route: 058
     Dates: start: 20220607
  3. KLOR-CON [Concomitant]
     Active Substance: POTASSIUM CHLORIDE
  4. KETAMINE HYDROCHLORIDE [Concomitant]
     Active Substance: KETAMINE HYDROCHLORIDE
  5. LECITHIN [Concomitant]
     Active Substance: LECITHIN
  6. VITAMINS [Concomitant]
     Active Substance: VITAMINS
  7. CLONIDINE HYDROCHLORIDE [Concomitant]
     Active Substance: CLONIDINE HYDROCHLORIDE
  8. KETOPROFEN [Concomitant]
     Active Substance: KETOPROFEN
  9. LIDOCAINE HYDROCHLORIDE [Concomitant]
     Active Substance: LIDOCAINE HYDROCHLORIDE
  10. VITAMIN D3 [Concomitant]
     Active Substance: CHOLECALCIFEROL
  11. AMITRIPTYLINE HYDROCHLORIDE [Concomitant]
     Active Substance: AMITRIPTYLINE HYDROCHLORIDE
  12. GABAPENTIN [Concomitant]
     Active Substance: GABAPENTIN
  13. POLOXAMER [Concomitant]
     Active Substance: POLOXAMER
  14. IMODIUM [Concomitant]
     Active Substance: LOPERAMIDE HYDROCHLORIDE
  15. LEVOTHYROXINE SODIUM [Concomitant]
     Active Substance: LEVOTHYROXINE SODIUM
  16. ACETAMINOPHEN [Concomitant]
     Active Substance: ACETAMINOPHEN
  17. SODIUM CHLORIDE [Concomitant]
     Active Substance: SODIUM CHLORIDE
  18. LACOSAMIDE [Concomitant]
     Active Substance: LACOSAMIDE
  19. TADALAFIL [Concomitant]
     Active Substance: TADALAFIL
  20. LOPERAMIDE [Concomitant]
     Active Substance: LOPERAMIDE

REACTIONS (7)
  - Syncope [Unknown]
  - Ill-defined disorder [Unknown]
  - Diarrhoea [Not Recovered/Not Resolved]
  - Nausea [Unknown]
  - Flushing [Unknown]
  - Medical device site erythema [Unknown]
  - Medical device site pain [Unknown]

NARRATIVE: CASE EVENT DATE: 20240101
